FAERS Safety Report 10681814 (Version 1)
Quarter: 2014Q4

REPORT INFORMATION
  Report Type: Spontaneous
  Country: US (occurrence: US)
  Receive Date: 20141230
  Receipt Date: 20141230
  Transmission Date: 20150529
  Serious: Yes (Hospitalization, Other)
  Sender: FDA-Public Use
  Company Number: US-DRREDDYS-USA/USA/14/0045191

PATIENT
  Age: 15 Year
  Sex: Female

DRUGS (1)
  1. IBUPROFEN. [Suspect]
     Active Substance: IBUPROFEN
     Indication: PRODUCT USED FOR UNKNOWN INDICATION
     Route: 065

REACTIONS (7)
  - Toxicity to various agents [Unknown]
  - Bezoar [Recovered/Resolved]
  - Tinnitus [Unknown]
  - Abdominal pain [Unknown]
  - Metabolic acidosis [Unknown]
  - Tachypnoea [Unknown]
  - Intentional overdose [Unknown]
